FAERS Safety Report 17851481 (Version 1)
Quarter: 2020Q2

REPORT INFORMATION
  Report Type: Spontaneous
  Country: US (occurrence: US)
  Receive Date: 20200602
  Receipt Date: 20200602
  Transmission Date: 20200714
  Serious: No
  Sender: FDA-Public Use
  Company Number: US-TEVA-2020-US-1242167

PATIENT
  Age: 44 Year
  Sex: Female

DRUGS (3)
  1. LIDOCAINE. [Suspect]
     Active Substance: LIDOCAINE
     Indication: GENITAL PAIN
     Route: 061
  2. TETRACAINE. [Suspect]
     Active Substance: TETRACAINE
     Indication: GENITAL PAIN
     Route: 061
  3. BENZOCAINE. [Suspect]
     Active Substance: BENZOCAINE
     Indication: GENITAL PAIN
     Route: 061

REACTIONS (6)
  - Dyskinesia [Unknown]
  - Chills [Unknown]
  - Muscle spasms [Unknown]
  - Hyperhidrosis [Unknown]
  - Tachycardia [Unknown]
  - Chest discomfort [Unknown]
